FAERS Safety Report 8827325 (Version 1)
Quarter: 2012Q4

REPORT INFORMATION
  Report Type: 
  Country: US (occurrence: US)
  Receive Date: 20121008
  Receipt Date: 20121008
  Transmission Date: 20130627
  Serious: Yes (Other)
  Sender: FDA-Public Use
  Company Number: US-ACCORD-014814

PATIENT
  Age: 13 Year
  Sex: Male

DRUGS (6)
  1. ETOPOSIDE [Suspect]
     Indication: HODGKIN^S LYMPHOMA
  2. CYCLOPHOSPHAMIDE [Suspect]
     Indication: HODGKIN^S LYMPHOMA
  3. DOXORUBICIN [Suspect]
     Indication: HODGKIN^S LYMPHOMA
  4. PREDNISONE [Suspect]
     Indication: HODGKIN^S LYMPHOMA
  5. BLEOMYCIN [Suspect]
     Indication: HODGKIN^S LYMPHOMA
  6. VINCRISTINE [Suspect]
     Indication: HODGKIN^S LYMPHOMA

REACTIONS (2)
  - Eruptive pseudoangiomatosis [Recovered/Resolved]
  - Off label use [Unknown]
